FAERS Safety Report 5875048-0 (Version None)
Quarter: 2008Q3

REPORT INFORMATION
  Report Type: 
  Country: None (occurrence: None)
  Receive Date: 20080908
  Receipt Date: 20080908
  Transmission Date: 20090109
  Serious: No
  Sender: FDA-Public Use
  Company Number: None

PATIENT
  Age: 26 Year
  Sex: Female
  Weight: 69.4003 kg

DRUGS (1)
  1. CIPROFLOXACIN [Suspect]
     Indication: URINARY TRACT INFECTION
     Dosage: 250 MGR 2 X DAY PO
     Route: 048
     Dates: start: 20080831, end: 20080901

REACTIONS (23)
  - ANXIETY [None]
  - ASTHENIA [None]
  - BURNING SENSATION [None]
  - CARDIAC FLUTTER [None]
  - CARPAL TUNNEL SYNDROME [None]
  - CHEST DISCOMFORT [None]
  - CONFUSIONAL STATE [None]
  - DISTURBANCE IN ATTENTION [None]
  - DYSPNOEA [None]
  - FATIGUE [None]
  - FEELING ABNORMAL [None]
  - MALAISE [None]
  - MEMORY IMPAIRMENT [None]
  - MUSCULOSKELETAL PAIN [None]
  - MUSCULOSKELETAL STIFFNESS [None]
  - NECK PAIN [None]
  - NERVOUSNESS [None]
  - PAIN [None]
  - PALPITATIONS [None]
  - RESTLESSNESS [None]
  - SENSATION OF HEAVINESS [None]
  - THINKING ABNORMAL [None]
  - VISION BLURRED [None]
